FAERS Safety Report 9290964 (Version 1)
Quarter: 2013Q2

REPORT INFORMATION
  Report Type: Spontaneous
  Country: JP (occurrence: JP)
  Receive Date: 20130515
  Receipt Date: 20130515
  Transmission Date: 20140414
  Serious: Yes (Other)
  Sender: FDA-Public Use
  Company Number: JP-SANOFI-AVENTIS-2013SA047321

PATIENT
  Age: 60 Year
  Sex: Female
  Weight: 43.3 kg

DRUGS (4)
  1. ONETAXOTERE [Suspect]
     Indication: BREAST CANCER
     Route: 042
     Dates: start: 20130417, end: 20130417
  2. CYCLOPHOSPHAMIDE [Concomitant]
     Indication: BREAST CANCER
     Route: 065
     Dates: start: 20130417, end: 20130417
  3. FENTANYL [Concomitant]
     Dosage: PATCH
     Route: 065
  4. OXINORM [Concomitant]
     Route: 065

REACTIONS (4)
  - Hypoxia [Recovered/Resolved]
  - Nausea [Recovered/Resolved]
  - Vomiting [Recovered/Resolved]
  - Tachycardia [Recovered/Resolved]
